FAERS Safety Report 16468502 (Version 1)
Quarter: 2019Q2

REPORT INFORMATION
  Report Type: Spontaneous
  Country: US (occurrence: US)
  Receive Date: 20190624
  Receipt Date: 20190624
  Transmission Date: 20190711
  Serious: Yes (Hospitalization, Other)
  Sender: FDA-Public Use
  Company Number: US-HIKMA PHARMACEUTICALS USA INC.-US-H14001-19-45744

PATIENT
  Age: 34 Year
  Sex: Female

DRUGS (4)
  1. FENTANYL. [Suspect]
     Active Substance: FENTANYL
     Indication: EPIDURAL ANALGESIA
     Dosage: AN INFUSION AT 10 ML/H WITH A DEMAND BOLUS OF 5 ML AND A 10-MIN LOCK-OUT
     Route: 008
  2. FENTANYL. [Suspect]
     Active Substance: FENTANYL
     Indication: EPIDURAL ANALGESIA
     Dosage: INITIAL BOLUS OF 15 ML OF 0.0625% BUPIVACAINE WITH 2 MG/ML FENTANYL ()
     Route: 008
  3. BUPIVACAINE. [Suspect]
     Active Substance: BUPIVACAINE
     Dosage: INITIAL BOLUS OF 15 ML OF 0.0625% BUPIVACAINE WITH 2 MG/ML FENTANYL
     Route: 008
  4. BUPIVACAINE. [Suspect]
     Active Substance: BUPIVACAINE
     Indication: EPIDURAL ANALGESIA
     Dosage: AN INFUSION AT 10 ML/H WITH A DEMAND BOLUS OF 5 ML AND A 10-MIN LOCK-OUT
     Route: 008

REACTIONS (2)
  - Syncope [Recovered/Resolved]
  - Tinnitus [Recovered/Resolved]
